FAERS Safety Report 4988264-7 (Version None)
Quarter: 2006Q2

REPORT INFORMATION
  Report Type: 
  Country: None (occurrence: None)
  Receive Date: 20060425
  Receipt Date: 20060411
  Transmission Date: 20061013
  Serious: Yes (Other)
  Sender: FDA-Public Use
  Company Number: 02100-JPN-06-0160

PATIENT
  Age: 46 Year
  Sex: Male

DRUGS (19)
  1. CILOSTAZOL [Suspect]
     Indication: CEREBRAL INFARCTION
     Dosage: 200 MG, ORAL
     Route: 048
     Dates: start: 20050922, end: 20051001
  2. CILOSTAZOL [Suspect]
     Indication: CEREBRAL INFARCTION
     Dosage: 200 MG, ORAL
     Route: 048
     Dates: start: 20051020, end: 20051102
  3. ATORVASTATIN CALCIUM [Suspect]
     Indication: HYPERCHOLESTEROLAEMIA
     Dosage: 5 MG; ORAL
     Route: 048
     Dates: start: 20050119
  4. CONCENTRATED GLYCERIN FRUCTOSE [Suspect]
     Dosage: 600 ML, IV DRIP
     Route: 041
     Dates: start: 20050925
  5. ARGATROBAN [Suspect]
     Dosage: 60 MG, IV DRIP
     Route: 041
     Dates: start: 20050925
  6. WARFARIN POTASSIUM [Suspect]
     Dosage: 1MG/NI; ORAL
     Route: 048
     Dates: start: 20050930, end: 20051031
  7. WARFARIN POTASSIUM [Suspect]
     Dosage: 1MG/NI; ORAL
     Route: 048
     Dates: start: 20051101
  8. METHYLPREDNISOLONE SODIUM SUCCINATE [Suspect]
     Dosage: 1000 MG,
     Dates: start: 20051001
  9. HEPARIN SODIUM [Suspect]
     Dosage: 10 KIU, IV DRIP
     Route: 041
  10. OZAGREL SODIUM [Concomitant]
  11. EDARAVONE DRIP [Concomitant]
  12. METOCLOPRAMIDE [Concomitant]
  13. SODIUM BICARBONATE [Concomitant]
  14. PHENOBARBITAL TAB [Concomitant]
  15. CEFOTIAM HYDROCHLORIDE [Concomitant]
  16. IMMUNE GLOBULIN INTRAVENOUS (HUMAN) [Concomitant]
  17. IMIPENEM CILASTATIN SODIUM [Concomitant]
  18. TICLOPIDINE HYDROCHLORIDE [Concomitant]
  19. CEFPIROME SULFATE [Concomitant]

REACTIONS (7)
  - AREFLEXIA [None]
  - CONVULSION [None]
  - DYSPHAGIA [None]
  - HAEMORRHAGIC INFARCTION [None]
  - NASOPHARYNGEAL DISORDER [None]
  - PALATAL DISORDER [None]
  - PARALYSIS [None]
